FAERS Safety Report 23960020 (Version 1)
Quarter: 2024Q2

REPORT INFORMATION
  Report Type: Report from Study
  Country: BR (occurrence: BR)
  Receive Date: 20240611
  Receipt Date: 20240611
  Transmission Date: 20240716
  Serious: Yes (Other)
  Sender: FDA-Public Use
  Company Number: BR-JNJFOC-20240608218

PATIENT
  Age: 29 Year
  Sex: Female
  Weight: 88 kg

DRUGS (1)
  1. INFLIXIMAB [Suspect]
     Active Substance: INFLIXIMAB
     Indication: Psoriatic arthropathy
     Route: 041
     Dates: start: 20160518

REACTIONS (3)
  - Pneumonia [Recovering/Resolving]
  - COVID-19 [Recovering/Resolving]
  - Off label use [Unknown]
